FAERS Safety Report 5042372-3 (Version None)
Quarter: 2006Q3

REPORT INFORMATION
  Report Type: 
  Country: None (occurrence: None)
  Receive Date: 20060705
  Receipt Date: 20060620
  Transmission Date: 20061208
  Serious: Yes (Hospitalization)
  Sender: FDA-Public Use
  Company Number: US-AMGEN-US183615

PATIENT
  Age: 75 Year
  Sex: Female

DRUGS (2)
  1. SENSIPAR [Suspect]
     Indication: HYPERPARATHYROIDISM SECONDARY
     Dates: start: 20051201, end: 20060614
  2. ZEMPLAR [Concomitant]

REACTIONS (9)
  - ASTHENIA [None]
  - BLOOD CALCIUM DECREASED [None]
  - CHILLS [None]
  - DIZZINESS [None]
  - DYSKINESIA [None]
  - FALL [None]
  - HALLUCINATION [None]
  - RASH [None]
  - VISION BLURRED [None]
